FAERS Safety Report 6975213-5 (Version None)
Quarter: 2010Q3

REPORT INFORMATION
  Report Type: 
  Country: None (occurrence: None)
  Receive Date: 20100910
  Receipt Date: 20090219
  Transmission Date: 20110219
  Serious: No
  Sender: FDA-Public Use
  Company Number: US-WYE-H08304709

PATIENT
  Age: 51 Year
  Sex: Female
  Weight: 68.1 kg

DRUGS (2)
  1. ADVIL PM [Suspect]
     Indication: PAIN
     Dosage: 1 CAPLET AT BEDTIME AS NEEDED
     Route: 048
  2. ADVIL PM [Suspect]
     Indication: INSOMNIA

REACTIONS (2)
  - DRUG INEFFECTIVE [None]
  - PRODUCT QUALITY ISSUE [None]
